FAERS Safety Report 5314202-3 (Version None)
Quarter: 2007Q2

REPORT INFORMATION
  Report Type: 
  Country: None (occurrence: None)
  Receive Date: 20070425
  Receipt Date: 20070412
  Transmission Date: 20071010
  Serious: Yes (Life-Threatening, Hospitalization)
  Sender: FDA-Public Use
  Company Number: RENA-12057

PATIENT
  Age: 44 Year
  Sex: Female
  Weight: 56 kg

DRUGS (9)
  1. RENAGEL [Suspect]
     Indication: HYPERPHOSPHATAEMIA
     Dosage: 2.4 G TID PO
     Route: 048
     Dates: start: 20051127, end: 20061001
  2. RENAGEL [Suspect]
     Indication: HYPERPHOSPHATAEMIA
     Dosage: 3.2 G TID PO
     Route: 048
     Dates: start: 20061001, end: 20061101
  3. RENAGEL [Suspect]
     Indication: HYPERPHOSPHATAEMIA
     Dosage: 4 G TID PO
     Route: 048
     Dates: start: 20061116, end: 20061122
  4. KAYEXALATE [Suspect]
     Indication: DRUG USE FOR UNKNOWN INDICATION
  5. VASTAREL F [Suspect]
     Indication: ESSENTIAL HYPERTENSION
     Dosage: 35 MG BID PO
     Route: 048
  6. SUCRALFATE [Suspect]
     Indication: PHOSPHORUS METABOLISM DISORDER
     Dates: start: 20061012
  7. ENALAPRIL MALEATE [Suspect]
     Indication: ESSENTIAL HYPERTENSION
     Dosage: 20 MG DAILY PO
     Route: 048
  8. NEORECORMON [Suspect]
     Indication: ANAEMIA
  9. LAROSCORBINE [Concomitant]

REACTIONS (17)
  - ANAEMIA [None]
  - CARDIAC MURMUR [None]
  - CIRCULATORY COLLAPSE [None]
  - DIVERTICULITIS [None]
  - DRUG DOSE OMISSION [None]
  - DUODENAL ULCER HAEMORRHAGE [None]
  - GASTRIC ULCER [None]
  - HAEMOGLOBIN DECREASED [None]
  - HYPERPHOSPHATAEMIA [None]
  - HYPOTENSION [None]
  - INTENTIONAL OVERDOSE [None]
  - PNEUMONIA [None]
  - SHOCK [None]
  - SHOCK HAEMORRHAGIC [None]
  - TREATMENT NONCOMPLIANCE [None]
  - VASCULAR CALCIFICATION [None]
  - WEIGHT INCREASED [None]
